FAERS Safety Report 8020696-5 (Version None)
Quarter: 2012Q1

REPORT INFORMATION
  Report Type: 
  Country: None (occurrence: None)
  Receive Date: 20120103
  Receipt Date: 20111222
  Transmission Date: 20120608
  Serious: Yes (Hospitalization)
  Sender: FDA-Public Use
  Company Number: US-ASTRAZENECA-2011SE78081

PATIENT
  Sex: Female

DRUGS (5)
  1. ADVAIR DISKUS 100/50 [Concomitant]
     Dosage: TWO PUFFS DAILY
  2. PREDISLON [Concomitant]
     Dosage: OFF AND ON
  3. SEROQUEL [Suspect]
     Route: 048
  4. LEXAPRO [Concomitant]
  5. SYMBICORT [Concomitant]
     Dosage: TWO PUFFS A DAY

REACTIONS (2)
  - NASOPHARYNGITIS [None]
  - CHRONIC OBSTRUCTIVE PULMONARY DISEASE [None]
